FAERS Safety Report 23508911 (Version 1)
Quarter: 2024Q1

REPORT INFORMATION
  Report Type: Report from Study
  Country: US (occurrence: US)
  Receive Date: 20240209
  Receipt Date: 20240209
  Transmission Date: 20240410
  Serious: Yes (Other)
  Sender: FDA-Public Use
  Company Number: US-ABBVIE-5543123

PATIENT
  Sex: Male

DRUGS (4)
  1. HUMIRA [Suspect]
     Active Substance: ADALIMUMAB
     Indication: Colitis ulcerative
     Dosage: FORM STRENGTH: 40 MG/LAST ADMIN DATE JAN 2023
     Route: 058
     Dates: start: 20230118
  2. HUMIRA [Suspect]
     Active Substance: ADALIMUMAB
     Dosage: FORM STRENGTH: 40 MILLIGRAM 1ST AND LAST ADMIN DATE JAN 2023
     Route: 058
  3. HUMIRA [Suspect]
     Active Substance: ADALIMUMAB
     Dosage: FORM STRENGTH: 40 MG/LAST ADMIN DATE JAN 2023
     Route: 058
     Dates: start: 20230120
  4. HUMIRA [Suspect]
     Active Substance: ADALIMUMAB
     Dosage: FORM STRENGTH: 40 MG/FIRST ADMIN ADMIN DATE JAN 2023
     Route: 058

REACTIONS (9)
  - Adenoma benign [Recovering/Resolving]
  - Colitis ulcerative [Not Recovered/Not Resolved]
  - Haemorrhage [Not Recovered/Not Resolved]
  - Colitis ulcerative [Recovered/Resolved]
  - Coccydynia [Unknown]
  - Injection site bruising [Recovered/Resolved]
  - Drug ineffective [Unknown]
  - Arthralgia [Unknown]
  - Paraesthesia [Unknown]

NARRATIVE: CASE EVENT DATE: 20230101
